FAERS Safety Report 5840300-1 (Version None)
Quarter: 2008Q3

REPORT INFORMATION
  Report Type: 
  Country: None (occurrence: None)
  Receive Date: 20080808
  Receipt Date: 20080808
  Transmission Date: 20090109
  Serious: Yes (Other)
  Sender: FDA-Public Use
  Company Number: None

PATIENT
  Age: 56 Year
  Sex: Female
  Weight: 74.8435 kg

DRUGS (1)
  1. SALONPAS [Suspect]
     Indication: BACK PAIN
     Dosage: 1 NIGHTLY CUTANEOUS
     Route: 003
     Dates: start: 20080719, end: 20080724

REACTIONS (2)
  - BLISTER [None]
  - ERYTHEMA [None]
